FAERS Safety Report 8243122-X (Version None)
Quarter: 2012Q1

REPORT INFORMATION
  Report Type: 
  Country: None (occurrence: None)
  Receive Date: 20120314
  Receipt Date: 20100830
  Transmission Date: 20120608
  Serious: Yes (Other)
  Sender: FDA-Public Use
  Company Number: PHHY2010US44035

PATIENT
  Age: 64 Year
  Sex: Female
  Weight: 130 kg

DRUGS (7)
  1. ZOLPIDEM [Concomitant]
  2. FANAPT [Suspect]
     Indication: PARANOIA
     Dosage: 1 MG, BID, ORAL
     Route: 048
     Dates: start: 20100629, end: 20100701
  3. RISPERIDONE [Concomitant]
  4. EFFEXOR XR [Concomitant]
  5. LORAZEPAM [Concomitant]
  6. BUPROPION HCL [Concomitant]
  7. WELLBUTRIN [Concomitant]

REACTIONS (1)
  - URINARY INCONTINENCE [None]
